FAERS Safety Report 4944969-5 (Version None)
Quarter: 2006Q1

REPORT INFORMATION
  Report Type: 
  Country: None (occurrence: None)
  Receive Date: 20060123
  Receipt Date: 20050421
  Transmission Date: 20060701
  Serious: Yes (Other)
  Sender: FDA-Public Use
  Company Number: PHEH2005US04419

PATIENT
  Sex: Female

DRUGS (2)
  1. SANDOSTATIN LAR [Suspect]
     Indication: COLON CANCER
     Dosage: 40 MG, QMO, INTRAMUSCULAR
     Route: 030
  2. FLUOROURACIL [Concomitant]

REACTIONS (2)
  - ASTHENIA [None]
  - HYPERTENSION [None]
